FAERS Safety Report 17191033 (Version 1)
Quarter: 2019Q4

REPORT INFORMATION
  Report Type: Report from Study
  Country: BR (occurrence: BR)
  Receive Date: 20191223
  Receipt Date: 20191223
  Transmission Date: 20200122
  Serious: Yes (Other)
  Sender: FDA-Public Use
  Company Number: NVSC2019BR075703

PATIENT
  Sex: Male

DRUGS (2)
  1. XARELTO [Suspect]
     Active Substance: RIVAROXABAN
     Indication: PRODUCT USED FOR UNKNOWN INDICATION
     Dosage: UNK
     Route: 065
  2. ENTRESTO [Suspect]
     Active Substance: SACUBITRIL\VALSARTAN
     Indication: CARDIAC FAILURE
     Dosage: 1 DF (49MG SAVUBITRIL/51MG VALSARTAN)
     Route: 065
     Dates: start: 20190602

REACTIONS (9)
  - Dysstasia [Unknown]
  - Rash papular [Not Recovered/Not Resolved]
  - Nervousness [Unknown]
  - Tachycardia [Unknown]
  - Myocardial infarction [Unknown]
  - Blood viscosity decreased [Unknown]
  - Concomitant disease aggravated [Not Recovered/Not Resolved]
  - Blood disorder [Not Recovered/Not Resolved]
  - Heart rate increased [Unknown]
